FAERS Safety Report 16568473 (Version 1)
Quarter: 2019Q3

REPORT INFORMATION
  Report Type: Spontaneous
  Country: RU (occurrence: RU)
  Receive Date: 20190712
  Receipt Date: 20190712
  Transmission Date: 20191004
  Serious: Yes (Other)
  Sender: FDA-Public Use
  Company Number: PHHY2019RU158388

PATIENT
  Age: 59 Year
  Sex: Male

DRUGS (2)
  1. PACLITAXEL. [Suspect]
     Active Substance: PACLITAXEL
     Indication: PRODUCT USED FOR UNKNOWN INDICATION
     Dosage: 80 MG/M2, DAYS 1,8,15 OF 28 DAYS CYCLE
     Route: 041
     Dates: start: 20170109
  2. PACLITAXEL. [Suspect]
     Active Substance: PACLITAXEL
     Dosage: 70 UNK, UNK
     Route: 065
     Dates: start: 20190425

REACTIONS (5)
  - Epistaxis [Unknown]
  - Metastases to liver [Unknown]
  - Neutropenia [Unknown]
  - Polyneuropathy [Unknown]
  - Proteinuria [Unknown]

NARRATIVE: CASE EVENT DATE: 20170227
